FAERS Safety Report 15887522 (Version 1)
Quarter: 2019Q1

REPORT INFORMATION
  Report Type: Spontaneous
  Country: DE (occurrence: DE)
  Receive Date: 20190130
  Receipt Date: 20190130
  Transmission Date: 20190417
  Serious: Yes (Hospitalization, Other)
  Sender: FDA-Public Use
  Company Number: DE-ACCORD-103874

PATIENT
  Age: 73 Year
  Sex: Male
  Weight: 85 kg

DRUGS (11)
  1. FOLIC ACID. [Concomitant]
     Active Substance: FOLIC ACID
     Dosage: 0.4 MG, 1-0-0-0, TABLETS
     Route: 048
  2. AMATUXIMAB [Suspect]
     Active Substance: AMATUXIMAB
     Indication: PRODUCT USED FOR UNKNOWN INDICATION
     Dosage: 5 MG/KG, SCHEME, SOLUTION FOR INJECTION / INFUSION
     Route: 042
  3. OMEPRAZOLE. [Concomitant]
     Active Substance: OMEPRAZOLE
     Dosage: 20 MG, 1-0-0-0, TABLETS
     Route: 048
  4. CYANOCOBALAMIN. [Concomitant]
     Active Substance: CYANOCOBALAMIN
     Dosage: 1000 MG, ACCORDING TO THE SCHEME, INJECTION / INFUSION
     Route: 030
  5. MACROGOL/POTASSIUM CHLORIDE/SODIUM BICARBONATE/SODIUM CHLORIDE [Concomitant]
     Dosage: 13.125 0.35 0.18 0.05 G, 1-0-0-0, SACHET
     Route: 048
  6. CISPLATIN. [Suspect]
     Active Substance: CISPLATIN
     Indication: PRODUCT USED FOR UNKNOWN INDICATION
     Route: 042
  7. ONDANSETRON [Concomitant]
     Active Substance: ONDANSETRON
     Dosage: 8 MG, NECESSARY, TABLETS
     Route: 048
  8. PEMETREXED. [Suspect]
     Active Substance: PEMETREXED
     Indication: PRODUCT USED FOR UNKNOWN INDICATION
     Route: 042
  9. METOCLOPRAMIDE. [Concomitant]
     Active Substance: METOCLOPRAMIDE
     Dosage: 10 MG, NECESSARY, TABLETS
     Route: 048
  10. DEXAMETHASONE. [Concomitant]
     Active Substance: DEXAMETHASONE
     Dosage: 4 MG, ACCORDING TO THE SCHEME, TABLETS
     Route: 048
  11. IBUPROFEN. [Concomitant]
     Active Substance: IBUPROFEN
     Dosage: 600 MG, BEDARF, TABLETTEN
     Route: 048

REACTIONS (5)
  - Pleural mesothelioma malignant [Unknown]
  - Constipation [Unknown]
  - Nausea [Unknown]
  - Acute kidney injury [Unknown]
  - Decreased appetite [Unknown]
